FAERS Safety Report 24959431 (Version 1)
Quarter: 2025Q1

REPORT INFORMATION
  Report Type: Spontaneous
  Country: HN (occurrence: HN)
  Receive Date: 20250212
  Receipt Date: 20250212
  Transmission Date: 20250409
  Serious: Yes (Death, Hospitalization, Disabling, Other)
  Sender: SANOFI AVENTIS
  Company Number: HN-SA-2025SA040304

PATIENT
  Age: 82 Year
  Sex: Female

DRUGS (2)
  1. LANTUS SOLOSTAR [Suspect]
     Active Substance: INSULIN GLARGINE
     Indication: Diabetes mellitus
     Dosage: 29 IU, QD
     Route: 058
     Dates: end: 202204
  2. METFORMIN HYDROCHLORIDE [Concomitant]
     Active Substance: METFORMIN HYDROCHLORIDE
     Indication: Diabetes mellitus
     Route: 065

REACTIONS (6)
  - Cerebrovascular accident [Fatal]
  - Blood glucose increased [Unknown]
  - Mental disorder [Unknown]
  - Mobility decreased [Unknown]
  - Condition aggravated [Unknown]
  - Decreased appetite [Unknown]

NARRATIVE: CASE EVENT DATE: 20210101
